FAERS Safety Report 24857945 (Version 1)
Quarter: 2025Q1

REPORT INFORMATION
  Report Type: Report from Study
  Country: JP (occurrence: JP)
  Receive Date: 20250117
  Receipt Date: 20250117
  Transmission Date: 20250408
  Serious: Yes (Other)
  Sender: ALEXION PHARMACEUTICALS
  Company Number: JP-ASTRAZENECA-230009434_011820_P_1

PATIENT
  Age: 8 Year

DRUGS (7)
  1. KOSELUGO [Suspect]
     Active Substance: SELUMETINIB
     Indication: Neurofibroma
  2. KOSELUGO [Suspect]
     Active Substance: SELUMETINIB
  3. KOSELUGO [Suspect]
     Active Substance: SELUMETINIB
  4. KOSELUGO [Suspect]
     Active Substance: SELUMETINIB
  5. KOSELUGO [Suspect]
     Active Substance: SELUMETINIB
  6. NAUZELIN [Concomitant]
     Active Substance: DOMPERIDONE
     Indication: Prophylaxis
  7. DIETARY SUPPLEMENT\PROBIOTICS [Concomitant]
     Active Substance: DIETARY SUPPLEMENT\PROBIOTICS NOS
     Indication: Prophylaxis

REACTIONS (8)
  - Blood creatine phosphokinase increased [Recovered/Resolved]
  - Eructation [Recovering/Resolving]
  - Epistaxis [Recovered/Resolved]
  - Product dose omission issue [Unknown]
  - Diarrhoea [Recovering/Resolving]
  - Vomiting [Recovering/Resolving]
  - Chills [Unknown]
  - Neurofibroma [Unknown]
